FAERS Safety Report 25887517 (Version 2)
Quarter: 2025Q4

REPORT INFORMATION
  Report Type: Spontaneous
  Country: CN (occurrence: CN)
  Receive Date: 20251007
  Receipt Date: 20251012
  Transmission Date: 20260117
  Serious: Yes (Hospitalization, Other)
  Sender: BAXTER
  Company Number: None

PATIENT
  Age: 1 Year
  Sex: Male
  Weight: 8 kg

DRUGS (8)
  1. CYCLOPHOSPHAMIDE [Suspect]
     Active Substance: CYCLOPHOSPHAMIDE
     Indication: Rhabdoid tumour of the kidney
     Dosage: 125.4 MG, QD (330 MG/M2 D1-4)
     Route: 041
     Dates: start: 20250914, end: 20250917
  2. MESNA [Suspect]
     Active Substance: MESNA
     Indication: Cystitis haemorrhagic
     Dosage: UNK
     Route: 065
     Dates: start: 20250914
  3. MESNA [Suspect]
     Active Substance: MESNA
     Indication: Prophylaxis
  4. ETOPOSIDE [Suspect]
     Active Substance: ETOPOSIDE
     Indication: Rhabdoid tumour of the kidney
     Dosage: 0.028 G, QD (0.075 G/M2 D1-4 )
     Route: 041
     Dates: start: 20250914, end: 20250917
  5. CARBOPLATIN [Suspect]
     Active Substance: CARBOPLATIN
     Indication: Rhabdoid tumour of the kidney
     Dosage: 156.75 MG, QD (412.5 MG/M2 D1)
     Route: 041
     Dates: start: 20250914, end: 20250914
  6. GLUTATHIONE [Concomitant]
     Active Substance: GLUTATHIONE
     Indication: Prophylaxis
     Dosage: UNK
     Route: 065
     Dates: start: 20250914
  7. GLUTATHIONE [Concomitant]
     Active Substance: GLUTATHIONE
     Indication: Antioxidant therapy
  8. ONDANSETRON [Concomitant]
     Active Substance: ONDANSETRON
     Indication: Prophylaxis of nausea and vomiting
     Dosage: UNK
     Route: 065
     Dates: start: 20250914

REACTIONS (9)
  - Myelosuppression [Recovering/Resolving]
  - White blood cell count decreased [Recovering/Resolving]
  - Full blood count decreased [Unknown]
  - Thrombocytopenia [Unknown]
  - Granulocytopenia [Recovering/Resolving]
  - Pneumonia [Unknown]
  - Cough [Unknown]
  - Dyspnoea [Unknown]
  - Diarrhoea [Unknown]

NARRATIVE: CASE EVENT DATE: 20250918
